FAERS Safety Report 7906226 (Version 3)
Quarter: 2012Q4

REPORT INFORMATION
  Report Type: Report from Study
  Country: DE (occurrence: DE)
  Receive Date: 20110420
  Receipt Date: 20121219
  Transmission Date: 20130627
  Serious: Yes (Hospitalization)
  Sender: FDA-Public Use
  Company Number: DE-JNJFOC-20110407818

PATIENT
  Age: 85 Year
  Sex: Male
  Weight: 73 kg

DRUGS (16)
  1. PALEXIA RETARD [Suspect]
     Indication: PAIN
     Route: 048
     Dates: start: 20101027, end: 201011
  2. PALEXIA RETARD [Suspect]
     Indication: PAIN
     Route: 048
     Dates: start: 2010, end: 20110202
  3. PALEXIA RETARD [Suspect]
     Indication: PAIN
     Route: 048
     Dates: start: 201011, end: 2010
  4. PALEXIA RETARD [Suspect]
     Indication: ARTHRALGIA
     Route: 048
     Dates: start: 201011, end: 2010
  5. PALEXIA RETARD [Suspect]
     Indication: ARTHRALGIA
     Route: 048
     Dates: start: 2010, end: 20110202
  6. PALEXIA RETARD [Suspect]
     Indication: ARTHRALGIA
     Route: 048
     Dates: start: 20101027, end: 201011
  7. PALEXIA RETARD [Suspect]
     Indication: BACK PAIN
     Route: 048
     Dates: start: 201011, end: 2010
  8. PALEXIA RETARD [Suspect]
     Indication: BACK PAIN
     Route: 048
     Dates: start: 2010, end: 20110202
  9. PALEXIA RETARD [Suspect]
     Indication: BACK PAIN
     Route: 048
     Dates: start: 20101027, end: 201011
  10. TARGIN [Concomitant]
     Dates: start: 201003
  11. RANTUDIL [Concomitant]
  12. PREGABALIN [Concomitant]
     Route: 065
  13. MACROGOL [Concomitant]
     Indication: CONSTIPATION
  14. METAMIZOL [Concomitant]
     Route: 065
  15. NOVAMINSULFON [Concomitant]
     Route: 065
  16. CELEBREX [Concomitant]
     Route: 065

REACTIONS (5)
  - Abdominal pain [Recovered/Resolved]
  - Colitis [Recovered/Resolved]
  - Anxiety [Recovered/Resolved]
  - Panic disorder [Recovered/Resolved]
  - Constipation [Recovered/Resolved]
